APPROVED DRUG PRODUCT: METOCLOPRAMIDE HYDROCHLORIDE
Active Ingredient: METOCLOPRAMIDE HYDROCHLORIDE
Strength: EQ 5MG BASE/5ML
Dosage Form/Route: SOLUTION;ORAL
Application: A071315 | Product #001
Applicant: TEVA PHARMACEUTICALS USA INC
Approved: Jun 30, 1993 | RLD: No | RS: No | Type: DISCN